FAERS Safety Report 22636453 (Version 1)
Quarter: 2023Q2

REPORT INFORMATION
  Report Type: Spontaneous
  Country: US (occurrence: US)
  Receive Date: 20230623
  Receipt Date: 20230623
  Transmission Date: 20230721
  Serious: No
  Sender: FDA-Public Use
  Company Number: US-BAYER-2023A084229

PATIENT
  Age: 65 Year
  Sex: Female

DRUGS (5)
  1. CLARITIN [Suspect]
     Active Substance: LORATADINE
     Indication: Pulmonary congestion
     Dosage: 40 MG, QD
     Dates: start: 202209
  2. TYVASO [Suspect]
     Active Substance: TREPROSTINIL
     Dosage: 64 ?G, QID
  3. ADCIRCA [Suspect]
     Active Substance: TADALAFIL
     Dosage: UNK
  4. FLONASE ALLERGY RELIEF [Suspect]
     Active Substance: FLUTICASONE PROPIONATE
     Indication: Ear congestion
     Dosage: UNK
  5. OPSUMIT [Concomitant]
     Active Substance: MACITENTAN
     Dosage: UNK

REACTIONS (2)
  - Dyspnoea [Unknown]
  - Therapeutic response decreased [Unknown]
